FAERS Safety Report 6628715-5 (Version None)
Quarter: 2010Q1

REPORT INFORMATION
  Report Type: 
  Country: None (occurrence: None)
  Receive Date: 20100311
  Receipt Date: 20100226
  Transmission Date: 20100710
  Serious: No
  Sender: FDA-Public Use
  Company Number: US-B.I. PHARMACEUTICALS,INC./RIDGEFIELD-2010-BP-02403BP

PATIENT
  Sex: Female

DRUGS (13)
  1. SPIRIVA [Suspect]
     Indication: CHRONIC OBSTRUCTIVE PULMONARY DISEASE
     Dosage: 18 MCG
     Route: 055
     Dates: start: 20090501
  2. SPIRIVA [Suspect]
     Indication: ASTHMA
     Dosage: 18 MCG
     Route: 055
     Dates: start: 20040101, end: 20070101
  3. ADVAIR DISKUS 100/50 [Concomitant]
     Indication: CHRONIC OBSTRUCTIVE PULMONARY DISEASE
  4. ADVAIR DISKUS 100/50 [Concomitant]
     Indication: ASTHMA
  5. SINGULAIR [Concomitant]
     Indication: CHRONIC OBSTRUCTIVE PULMONARY DISEASE
  6. SINGULAIR [Concomitant]
     Indication: ASTHMA
  7. XANAX [Concomitant]
     Indication: ANXIETY
  8. LASIX [Concomitant]
     Indication: OEDEMA PERIPHERAL
  9. OMEPRAZOLE [Concomitant]
     Indication: GASTROOESOPHAGEAL REFLUX DISEASE
  10. LISINOPRIL [Concomitant]
     Indication: HYPERTENSION
  11. HYDROCORTISONE [Concomitant]
     Indication: ARTHRITIS
  12. NORCO [Concomitant]
     Indication: ARTHRALGIA
  13. CYMBALTA [Concomitant]
     Indication: DEPRESSION

REACTIONS (2)
  - BRONCHITIS [None]
  - URINARY TRACT INFECTION [None]
